FAERS Safety Report 9053377 (Version 2)
Quarter: 2013Q1

REPORT INFORMATION
  Report Type: Spontaneous
  Country: DE (occurrence: DE)
  Receive Date: 20130208
  Receipt Date: 20130225
  Transmission Date: 20140127
  Serious: Yes (Other)
  Sender: FDA-Public Use
  Company Number: DE-BAYER-2013-016006

PATIENT
  Age: 50 Year
  Sex: Female
  Weight: 72 kg

DRUGS (1)
  1. AVALOX [Suspect]
     Indication: SINOBRONCHITIS
     Dosage: 400 MG, QD
     Dates: start: 20130201, end: 20130203

REACTIONS (3)
  - Ageusia [Recovering/Resolving]
  - Anosmia [Recovering/Resolving]
  - Hypoaesthesia [Recovering/Resolving]
